FAERS Safety Report 6449733-6 (Version None)
Quarter: 2009Q4

REPORT INFORMATION
  Report Type: 
  Country: None (occurrence: None)
  Receive Date: 20091120
  Receipt Date: 20091109
  Transmission Date: 20100525
  Serious: Yes (Hospitalization)
  Sender: FDA-Public Use
  Company Number: FR-WATSON-2009-09616

PATIENT
  Sex: Male

DRUGS (5)
  1. PREDNISOLONE (WATSON LABORATORIES) [Suspect]
     Indication: POISONING
     Dosage: 60 MG, SINGLE
     Route: 048
  2. VORICONAZOLE [Suspect]
     Indication: POISONING
     Dosage: 9.8 G, SINGLE
     Route: 048
  3. BROMAZEPAM [Suspect]
     Indication: POISONING
     Dosage: 120 MG, SINGLE
     Route: 048
  4. SULFAMETHOXAZOLE [Suspect]
     Indication: POISONING
     Dosage: 4 G, SINGLE
     Route: 048
  5. AZITHROMYCIN [Suspect]
     Indication: POISONING
     Dosage: 2.5 G, SINGLE
     Route: 048

REACTIONS (6)
  - AGITATION [None]
  - CONFUSIONAL STATE [None]
  - HEPATIC ENZYME ABNORMAL [None]
  - OVERDOSE [None]
  - RENAL FAILURE ACUTE [None]
  - RHABDOMYOLYSIS [None]
